FAERS Safety Report 10693170 (Version 1)
Quarter: 2015Q1

REPORT INFORMATION
  Report Type: Spontaneous
  Country: US (occurrence: US)
  Receive Date: 20150106
  Receipt Date: 20150106
  Transmission Date: 20150720
  Serious: Yes (Other)
  Sender: FDA-Public Use
  Company Number: US-AMGEN-USASP2014102277

PATIENT
  Age: 72 Year
  Sex: Female

DRUGS (1)
  1. PROLIA [Suspect]
     Active Substance: DENOSUMAB
     Indication: PRODUCT USED FOR UNKNOWN INDICATION
     Dosage: UNK
     Route: 065
     Dates: start: 201305

REACTIONS (6)
  - Osteonecrosis of jaw [Unknown]
  - Back pain [Unknown]
  - Muscle strain [Unknown]
  - Insomnia [Unknown]
  - Balance disorder [Unknown]
  - Ear pain [Unknown]

NARRATIVE: CASE EVENT DATE: 201411
